FAERS Safety Report 7795535-8 (Version None)
Quarter: 2011Q3

REPORT INFORMATION
  Report Type: 
  Country: None (occurrence: None)
  Receive Date: 20110930
  Receipt Date: 20110921
  Transmission Date: 20111222
  Serious: Yes (Other)
  Sender: FDA-Public Use
  Company Number: 2010SP004918

PATIENT
  Age: 50 Year
  Sex: Female
  Weight: 63.5036 kg

DRUGS (2)
  1. NUVARING [Suspect]
     Indication: MENSTRUATION IRREGULAR
     Dosage: VAG
     Route: 067
     Dates: start: 20080501, end: 20081001
  2. TYLENOL-500 [Concomitant]

REACTIONS (11)
  - DYSFUNCTIONAL UTERINE BLEEDING [None]
  - COAGULATION FACTOR VIII LEVEL INCREASED [None]
  - GASTROOESOPHAGEAL REFLUX DISEASE [None]
  - FACTOR V LEIDEN MUTATION [None]
  - CONTUSION [None]
  - THROMBOSIS [None]
  - UTERINE LEIOMYOMA [None]
  - DEEP VEIN THROMBOSIS [None]
  - WEIGHT INCREASED [None]
  - OVARIAN CYST [None]
  - ASTHENIA [None]
